FAERS Safety Report 8778911 (Version 1)
Quarter: 2012Q4

REPORT INFORMATION
  Report Type: 
  Country: US (occurrence: US)
  Receive Date: 20120907
  Receipt Date: 20120907
  Transmission Date: 20130627
  Serious: Yes (Hospitalization)
  Sender: FDA-Public Use
  Company Number: US-ELI_LILLY_AND_COMPANY-US200910007718

PATIENT
  Age: 39 Year
  Sex: Male
  Weight: 72.11 kg

DRUGS (3)
  1. ZYPREXA [Suspect]
     Indication: SCHIZOPHRENIA
     Dosage: 7.5 mg, each evening
     Dates: start: 20010518
  2. VALIUM [Concomitant]
  3. GEODON [Concomitant]

REACTIONS (11)
  - Type 2 diabetes mellitus [Not Recovered/Not Resolved]
  - Anaemia [Unknown]
  - Hypertension [Unknown]
  - Angiopathy [Unknown]
  - Weight decreased [Unknown]
  - Vision blurred [Unknown]
  - Obesity [Unknown]
  - Bronchitis [Unknown]
  - Upper respiratory tract infection [Unknown]
  - Hyperlipidaemia [Unknown]
  - Weight increased [Unknown]
